FAERS Safety Report 6614855-3 (Version None)
Quarter: 2010Q1

REPORT INFORMATION
  Report Type: 
  Country: None (occurrence: None)
  Receive Date: 20100305
  Receipt Date: 20100224
  Transmission Date: 20100710
  Serious: Yes (Hospitalization)
  Sender: FDA-Public Use
  Company Number: US-BIOGENIDEC-2010BI006419

PATIENT
  Age: 26 Year
  Sex: Female

DRUGS (3)
  1. TYSABRI [Suspect]
     Indication: MULTIPLE SCLEROSIS
     Route: 042
     Dates: start: 20081223
  2. SOLU-MEDROL [Concomitant]
     Indication: DEAFNESS
     Dates: start: 20081223
  3. SOLU-MEDROL [Concomitant]
     Indication: HYPOAESTHESIA FACIAL
     Dates: start: 20081223

REACTIONS (2)
  - DEAFNESS [None]
  - HYPOAESTHESIA FACIAL [None]
